FAERS Safety Report 13029213 (Version 2)
Quarter: 2016Q4

REPORT INFORMATION
  Report Type: Spontaneous
  Country: FR (occurrence: FR)
  Receive Date: 20161215
  Receipt Date: 20161220
  Transmission Date: 20170207
  Serious: Yes (Death, Life-Threatening, Other)
  Sender: FDA-Public Use
  Company Number: FR-009507513-1612FRA003516

PATIENT
  Age: 57 Year
  Sex: Female

DRUGS (7)
  1. TEMODAL [Suspect]
     Active Substance: TEMOZOLOMIDE
     Indication: GLIOBLASTOMA
     Dosage: UNK
     Route: 048
     Dates: start: 20160919, end: 20161108
  2. IMOVANE [Concomitant]
     Active Substance: ZOPICLONE
  3. KEPPRA [Concomitant]
     Active Substance: LEVETIRACETAM
  4. SOLUPRED [Concomitant]
     Active Substance: PREDNISOLONE
  5. BACTRIM [Concomitant]
     Active Substance: SULFAMETHOXAZOLE\TRIMETHOPRIM
  6. XANAX [Concomitant]
     Active Substance: ALPRAZOLAM
  7. INEXIUM (ESOMEPRAZOLE MAGNESIUM) [Concomitant]
     Active Substance: ESOMEPRAZOLE MAGNESIUM

REACTIONS (3)
  - Cellulitis gangrenous [Fatal]
  - Bone marrow failure [Fatal]
  - Septic shock [Fatal]

NARRATIVE: CASE EVENT DATE: 20161108
